FAERS Safety Report 17703478 (Version 2)
Quarter: 2024Q2

REPORT INFORMATION
  Report Type: Spontaneous
  Country: US (occurrence: US)
  Receive Date: 20200424
  Receipt Date: 20240517
  Transmission Date: 20240716
  Serious: No
  Sender: FDA-Public Use
  Company Number: US-GSKCCFUS-CASE-00664725_AE-39041

PATIENT
  Sex: Female

DRUGS (5)
  1. BENLYSTA [Suspect]
     Active Substance: BELIMUMAB
     Indication: Lupus pancreatitis
     Dosage: 200 MG/ML
     Route: 058
  2. BENLYSTA [Suspect]
     Active Substance: BELIMUMAB
     Indication: Systemic lupus erythematosus
  3. PREDNISONE [Concomitant]
     Active Substance: PREDNISONE
     Indication: Systemic lupus erythematosus
     Dosage: UNK
  4. PREDNISONE [Concomitant]
     Active Substance: PREDNISONE
     Dosage: UNK; INCREASE FOR ONE DAY
  5. HYDROXYCHLOROQUINE [Concomitant]
     Active Substance: HYDROXYCHLOROQUINE
     Indication: Systemic lupus erythematosus
     Dosage: UNK

REACTIONS (7)
  - Amnesia [Unknown]
  - Myalgia [Unknown]
  - Fatigue [Unknown]
  - Abdominal pain upper [Unknown]
  - Product use in unapproved indication [Unknown]
  - Product storage error [Unknown]
  - Product dose omission issue [Unknown]
